FAERS Safety Report 25721873 (Version 1)
Quarter: 2025Q3

REPORT INFORMATION
  Report Type: Spontaneous
  Country: US (occurrence: US)
  Receive Date: 20250825
  Receipt Date: 20250825
  Transmission Date: 20251021
  Serious: No
  Sender: CHATTEM
  Company Number: US-OPELLA-2024OHG005554

PATIENT
  Sex: Female

DRUGS (1)
  1. NASACORT ALLERGY 24HR [Suspect]
     Active Substance: TRIAMCINOLONE ACETONIDE
     Indication: Rhinitis
     Dosage: SPRAYS TWICE PER NOSTRIL
     Route: 045
     Dates: start: 2023

REACTIONS (5)
  - Headache [Unknown]
  - Nasal congestion [Unknown]
  - Gingival pain [Unknown]
  - Gingival swelling [Unknown]
  - Illness [Unknown]

NARRATIVE: CASE EVENT DATE: 20240101
